FAERS Safety Report 17008861 (Version 2)
Quarter: 2019Q4

REPORT INFORMATION
  Report Type: Spontaneous
  Country: US (occurrence: US)
  Receive Date: 20191108
  Receipt Date: 20191127
  Transmission Date: 20200122
  Serious: No
  Sender: FDA-Public Use
  Company Number: US-GLAXOSMITHKLINE-US2019197440

PATIENT
  Age: 38 Year
  Sex: Male

DRUGS (1)
  1. DICLOFENAC SODIUM GEL [Suspect]
     Active Substance: DICLOFENAC SODIUM
     Indication: INFLAMMATION
     Dosage: UNK UNK, QD
     Dates: start: 20181101

REACTIONS (4)
  - Product complaint [Unknown]
  - Product use in unapproved indication [Unknown]
  - Inappropriate schedule of product administration [Unknown]
  - Application site pain [Unknown]

NARRATIVE: CASE EVENT DATE: 20181101
